FAERS Safety Report 24849789 (Version 4)
Quarter: 2025Q1

REPORT INFORMATION
  Report Type: Report from Study
  Country: TH (occurrence: TH)
  Receive Date: 20250116
  Receipt Date: 20250225
  Transmission Date: 20250408
  Serious: Yes (Other)
  Sender: NOVARTIS
  Company Number: TH-002147023-NVSC2025TH005005

PATIENT
  Sex: Female

DRUGS (7)
  1. KISQALI [Suspect]
     Active Substance: RIBOCICLIB
     Indication: Breast cancer metastatic
     Route: 048
  2. FEMARA [Suspect]
     Active Substance: LETROZOLE
     Indication: Product used for unknown indication
     Dosage: 1 DOSAGE FORM, QD (1 TABLET, (ONCE A DAY BEFORE BREAKFAST))
     Route: 065
  3. ZOLEDRONIC ACID [Concomitant]
     Active Substance: ZOLEDRONIC ACID
     Indication: Bone disorder
     Dosage: UNK, QMO
     Route: 065
     Dates: start: 20231214
  4. ZOLEDRONIC ACID [Concomitant]
     Active Substance: ZOLEDRONIC ACID
     Dosage: UNK, QMO
     Route: 065
     Dates: start: 20241212
  5. Caltab [Concomitant]
     Indication: Product used for unknown indication
     Dosage: CALCIUM EQ. 500 MG (CALTAB 1250) (ONCE A DAY AFTER BREAKFAST)
     Route: 065
  6. VITAMIN D [Concomitant]
     Active Substance: VITAMIN D NOS
     Indication: Product used for unknown indication
     Dosage: 20,000 U (1 CAPSULE) (ONCE A DAY WITH BREAKFAST, ONCE A WEEK)
     Route: 065
  7. Fbc [Concomitant]
     Indication: Product used for unknown indication
     Dosage: 1 DOSAGE FORM (1 TABLET) (ONCE A DAY AFTER LUNCH)
     Route: 065

REACTIONS (7)
  - Hepatitis [Unknown]
  - Thrombocytopenia [Unknown]
  - Blood test abnormal [Unknown]
  - Hepatic steatosis [Unknown]
  - Pain [Unknown]
  - Anaemia [Unknown]
  - Platelet disorder [Unknown]
